FAERS Safety Report 5246492-X (Version None)
Quarter: 2007Q1

REPORT INFORMATION
  Report Type: 
  Country: None (occurrence: None)
  Receive Date: 20070226
  Receipt Date: 20070213
  Transmission Date: 20070707
  Serious: Yes (Hospitalization)
  Sender: FDA-Public Use
  Company Number: US-BRISTOL-MYERS SQUIBB COMPANY-13687884

PATIENT
  Age: 59 Year
  Sex: Male

DRUGS (6)
  1. PRINIVIL [Suspect]
     Indication: HYPERTENSION
     Route: 048
  2. IRBESARTAN [Suspect]
     Indication: HYPERTENSION
  3. METOPROLOL SUCCINATE [Suspect]
     Indication: HYPERTENSION
  4. POTASSIUM CHLORIDE [Suspect]
     Indication: HYPERTENSION
  5. PLENDIL [Suspect]
     Indication: HYPERTENSION
  6. LASIX [Suspect]
     Indication: HYPERTENSION

REACTIONS (12)
  - ABDOMINAL PAIN [None]
  - ANOREXIA [None]
  - ASTHENIA [None]
  - BLOOD PRESSURE SYSTOLIC DECREASED [None]
  - DYSGEUSIA [None]
  - FLUID INTAKE REDUCED [None]
  - HYPERTENSION [None]
  - HYPOTENSION [None]
  - HYPOVOLAEMIA [None]
  - RENAL FAILURE ACUTE [None]
  - RENAL FAILURE CHRONIC [None]
  - TREATMENT NONCOMPLIANCE [None]
